FAERS Safety Report 18359391 (Version 3)
Quarter: 2021Q2

REPORT INFORMATION
  Report Type: Spontaneous
  Country: RU (occurrence: RU)
  Receive Date: 20201008
  Receipt Date: 20210402
  Transmission Date: 20210717
  Serious: Yes (Hospitalization, Other)
  Sender: FDA-Public Use
  Company Number: RU-IPCA LABORATORIES LIMITED-IPC-2020-RU-003213

PATIENT

DRUGS (1)
  1. WARFARIN [Suspect]
     Active Substance: WARFARIN
     Indication: PRODUCT USED FOR UNKNOWN INDICATION
     Dosage: 5 MILLIGRAM, QD
     Route: 065
     Dates: start: 20170331, end: 201901

REACTIONS (8)
  - International normalised ratio increased [Recovered/Resolved]
  - Poor peripheral circulation [Recovered/Resolved]
  - Raynaud^s phenomenon [Recovered/Resolved]
  - Tachycardia [Recovered/Resolved]
  - Skin necrosis [Recovered/Resolved]
  - Protein-losing gastroenteropathy [Recovered/Resolved]
  - Hepatomegaly [Recovered/Resolved]
  - Thrombosis [Recovered/Resolved]

NARRATIVE: CASE EVENT DATE: 201812
